FAERS Safety Report 12475901 (Version 2)
Quarter: 2016Q2

REPORT INFORMATION
  Report Type: Report from Study
  Country: RU (occurrence: RU)
  Receive Date: 20160617
  Receipt Date: 20160623
  Transmission Date: 20160815
  Serious: Yes (Hospitalization)
  Sender: FDA-Public Use
  Company Number: RU-SUNOVION-2016DSP000337

PATIENT
  Age: 25 Year
  Sex: Female
  Weight: 71.5 kg

DRUGS (2)
  1. BIPERIDEN [Concomitant]
     Active Substance: BIPERIDEN
     Indication: AKATHISIA
     Dosage: 6 MG, QD
     Route: 048
     Dates: start: 20160601, end: 20160605
  2. LURASIDONE HYDROCHLORIDE [Suspect]
     Active Substance: LURASIDONE HYDROCHLORIDE
     Indication: BIPOLAR I DISORDER
     Dosage: 80 MG, QD
     Route: 048
     Dates: start: 20160329, end: 20160605

REACTIONS (1)
  - Suicide attempt [Recovered/Resolved]

NARRATIVE: CASE EVENT DATE: 20160606
